FAERS Safety Report 9913072 (Version 1)
Quarter: 2014Q1

REPORT INFORMATION
  Report Type: Spontaneous
  Country: US (occurrence: None)
  Receive Date: 20140218
  Receipt Date: 20140218
  Transmission Date: 20141002
  Serious: No
  Sender: FDA-Public Use
  Company Number: None

PATIENT
  Age: 30 Year
  Sex: Male
  Weight: 81.65 kg

DRUGS (3)
  1. ICY HOT [Suspect]
     Indication: BACK PAIN
     Dates: start: 20131110, end: 20131116
  2. ICY HOT [Suspect]
     Indication: BACK DISORDER
     Dates: start: 20131110, end: 20131116
  3. ICY HOT [Suspect]
     Indication: MUSCLE TIGHTNESS
     Dates: start: 20131110, end: 20131116

REACTIONS (1)
  - Application site pruritus [None]
